FAERS Safety Report 21556624 (Version 1)
Quarter: 2022Q4

REPORT INFORMATION
  Report Type: Spontaneous
  Country: FR (occurrence: FR)
  Receive Date: 20221104
  Receipt Date: 20221104
  Transmission Date: 20230112
  Serious: Yes (Other)
  Sender: FDA-Public Use
  Company Number: FR-PFIZER INC-PV202200095244

PATIENT
  Age: 3 Year

DRUGS (4)
  1. VINCRISTINE SULFATE [Suspect]
     Active Substance: VINCRISTINE SULFATE
     Indication: Alveolar rhabdomyosarcoma
     Dosage: UNK UNK, EVERY 3 WEEKS
  2. IFOSFAMIDE [Suspect]
     Active Substance: IFOSFAMIDE
     Indication: Alveolar rhabdomyosarcoma
     Dosage: UNK UNK, EVERY 3 WEEKS
  3. ACTINOMYCIN D [Suspect]
     Active Substance: DACTINOMYCIN
     Indication: Alveolar rhabdomyosarcoma
     Dosage: UNK UNK, EVERY 3 WEEKS
  4. DACTINOMYCIN [Suspect]
     Active Substance: DACTINOMYCIN
     Indication: Alveolar rhabdomyosarcoma
     Dosage: UNK UNK, EVERY 3 WEEKS

REACTIONS (2)
  - Mallory-Weiss syndrome [Unknown]
  - Functional gastrointestinal disorder [Unknown]
